FAERS Safety Report 20999083 (Version 1)
Quarter: 2022Q2

REPORT INFORMATION
  Report Type: Spontaneous
  Country: US (occurrence: None)
  Receive Date: 20220623
  Receipt Date: 20220623
  Transmission Date: 20220720
  Serious: No
  Sender: FDA-Public Use
  Company Number: None

PATIENT
  Sex: Female

DRUGS (1)
  1. TEMOZOLOMIDE [Suspect]
     Active Substance: TEMOZOLOMIDE
     Indication: Brain neoplasm malignant
     Dosage: FREQUENCY : DAILY;? TAKE 1 CAPSULES BY MOUTH 1 TIME A DAY FOR 5 DAYS OF 28 DAY CYCLE
     Route: 048
     Dates: start: 202206

REACTIONS (5)
  - Headache [None]
  - Asthenia [None]
  - Fatigue [None]
  - Gait disturbance [None]
  - Renal disorder [None]
